FAERS Safety Report 10776570 (Version 1)
Quarter: 2015Q1

REPORT INFORMATION
  Report Type: Spontaneous
  Country: US (occurrence: None)
  Receive Date: 20150205
  Receipt Date: 20150205
  Transmission Date: 20150721
  Serious: Yes (Other)
  Sender: FDA-Public Use
  Company Number: None

PATIENT
  Age: 27 Year
  Sex: Female
  Weight: 58.97 kg

DRUGS (3)
  1. TROKENDI XR [Suspect]
     Active Substance: TOPIRAMATE
     Indication: HEADACHE
     Dosage: 1 PILL ONCE DAILY TAKEN BY MOUTH
     Route: 048
     Dates: start: 20150119, end: 20150124
  2. TROKENDI XR [Suspect]
     Active Substance: TOPIRAMATE
     Indication: SEIZURE
     Dosage: 1 PILL ONCE DAILY TAKEN BY MOUTH
     Route: 048
     Dates: start: 20150119, end: 20150124
  3. TROKENDI XR [Suspect]
     Active Substance: TOPIRAMATE
     Indication: POST CONCUSSION SYNDROME
     Dosage: 1 PILL ONCE DAILY TAKEN BY MOUTH
     Route: 048
     Dates: start: 20150119, end: 20150124

REACTIONS (6)
  - Asthenia [None]
  - Headache [None]
  - Somnolence [None]
  - Dysphagia [None]
  - Dysarthria [None]
  - Fatigue [None]

NARRATIVE: CASE EVENT DATE: 20150121
